FAERS Safety Report 15725891 (Version 1)
Quarter: 2018Q4

REPORT INFORMATION
  Report Type: Report from Study
  Country: IQ (occurrence: IQ)
  Receive Date: 20181216
  Receipt Date: 20181216
  Transmission Date: 20190205
  Serious: Yes (Other)
  Sender: FDA-Public Use
  Company Number: PHHY2017IQ038204

PATIENT
  Sex: Male

DRUGS (1)
  1. TASIGNA [Suspect]
     Active Substance: NILOTINIB
     Indication: CHRONIC MYELOID LEUKAEMIA
     Dosage: 600 MG, QD
     Route: 048
     Dates: start: 20151201

REACTIONS (12)
  - Umbilical hernia [Not Recovered/Not Resolved]
  - Fatigue [Not Recovered/Not Resolved]
  - Back pain [Recovering/Resolving]
  - Food interaction [Unknown]
  - Bone pain [Not Recovered/Not Resolved]
  - Diarrhoea [Recovered/Resolved]
  - Choking [Unknown]
  - Insomnia [Unknown]
  - Cough [Recovering/Resolving]
  - Dyskinesia [Unknown]
  - Vomiting [Not Recovered/Not Resolved]
  - Inguinal hernia [Not Recovered/Not Resolved]
